FAERS Safety Report 6022429-0 (Version None)
Quarter: 2008Q4

REPORT INFORMATION
  Report Type: 
  Country: None (occurrence: None)
  Receive Date: 20081230
  Receipt Date: 20081218
  Transmission Date: 20090506
  Serious: Yes (Death)
  Sender: FDA-Public Use
  Company Number: PHNU2008DE00799

PATIENT
  Sex: Male
  Weight: 84 kg

DRUGS (5)
  1. RASILEZ [Suspect]
     Indication: HYPERTENSION
     Dosage: 300 MG/D
     Route: 048
     Dates: start: 20080115, end: 20080127
  2. RASILEZ [Suspect]
  3. CELEBREX [Suspect]
     Indication: BACK PAIN
     Dosage: 200 MG/D
     Route: 048
     Dates: start: 20060404
  4. CELEBREX [Suspect]
     Indication: POLYARTHRITIS
     Dosage: 100 MG/DAY
     Route: 048
     Dates: start: 20070701, end: 20080127
  5. EMESTAR PLUS [Concomitant]
     Indication: HYPERTENSION
     Dosage: 1 DF, QD
     Route: 048
     Dates: start: 20060117, end: 20080115

REACTIONS (3)
  - CARDIAC ARREST [None]
  - CYANOSIS [None]
  - SUDDEN CARDIAC DEATH [None]
